FAERS Safety Report 5580231-8 (Version None)
Quarter: 2007Q4

REPORT INFORMATION
  Report Type: 
  Country: None (occurrence: None)
  Receive Date: 20071231
  Receipt Date: 20071231
  Transmission Date: 20080405
  Serious: No
  Sender: FDA-Public Use
  Company Number: None

PATIENT
  Age: 79 Year
  Sex: Female
  Weight: 68.4932 kg

DRUGS (2)
  1. AZITHROMYCIN [Suspect]
     Indication: BRONCHITIS
     Dosage: 2 TABS ORALLY INITIAL DOSE 047 THEN 1 TAB QD 047
     Route: 048
     Dates: start: 20071227
  2. AZITHROMYCIN [Suspect]
     Indication: NASOPHARYNGITIS
     Dosage: 2 TABS ORALLY INITIAL DOSE 047 THEN 1 TAB QD 047
     Route: 048
     Dates: start: 20071227

REACTIONS (2)
  - NAUSEA [None]
  - VOMITING [None]
